FAERS Safety Report 10100654 (Version 1)
Quarter: 2014Q2

REPORT INFORMATION
  Report Type: Spontaneous
  Country: KR (occurrence: KR)
  Receive Date: 20140423
  Receipt Date: 20140423
  Transmission Date: 20141212
  Serious: Yes (Hospitalization)
  Sender: FDA-Public Use
  Company Number: PHHY2014KR047223

PATIENT
  Age: 69 Year
  Sex: Male

DRUGS (3)
  1. DOXORUBICIN [Suspect]
     Indication: HEPATOCELLULAR CARCINOMA
     Dosage: 15 MG, UNK
  2. LIPIODOL [Suspect]
     Indication: HEPATOCELLULAR CARCINOMA
     Dosage: 4 ML, UNK
  3. GELFOAM [Suspect]
     Indication: HEPATOCELLULAR CARCINOMA

REACTIONS (16)
  - Pancreatitis necrotising [Recovering/Resolving]
  - Pancreatic abscess [Recovering/Resolving]
  - Decreased appetite [Recovering/Resolving]
  - Nausea [Recovering/Resolving]
  - Abdominal pain [Recovering/Resolving]
  - Pyrexia [Recovering/Resolving]
  - Post embolisation syndrome [Recovering/Resolving]
  - Abdominal tenderness [Recovering/Resolving]
  - Abdominal mass [Recovering/Resolving]
  - Oedematous pancreatitis [Recovering/Resolving]
  - Hepatic function abnormal [Unknown]
  - Pancreatitis acute [Recovering/Resolving]
  - Pancreas infection [Recovering/Resolving]
  - Staphylococcal infection [Recovering/Resolving]
  - Citrobacter infection [Recovering/Resolving]
  - Klebsiella infection [Recovering/Resolving]
